FAERS Safety Report 9346035 (Version 2)
Quarter: 2014Q1

REPORT INFORMATION
  Report Type: Spontaneous
  Country: AT (occurrence: AT)
  Receive Date: 20130613
  Receipt Date: 20140217
  Transmission Date: 20141002
  Serious: Yes (Hospitalization, Other)
  Sender: FDA-Public Use
  Company Number: AT-ELI_LILLY_AND_COMPANY-AT201306002268

PATIENT
  Sex: Male

DRUGS (5)
  1. ZYPREXA [Suspect]
     Indication: SCHIZOPHRENIA, DISORGANISED TYPE
     Dosage: 40 MG, QD
     Route: 065
  2. ZYPREXA [Suspect]
     Dosage: 20 MG, QD
     Route: 048
     Dates: start: 20130207, end: 20130212
  3. LEPONEX [Concomitant]
     Dosage: 400 MG, QD
     Route: 065
     Dates: end: 20130207
  4. LEPONEX [Concomitant]
     Dosage: 1 DF, UNKNOWN
     Route: 065
     Dates: start: 20130213
  5. TEMESTA                            /00273201/ [Concomitant]
     Indication: PRODUCT USED FOR UNKNOWN INDICATION
     Route: 065

REACTIONS (3)
  - Pleurothotonus [Recovered/Resolved]
  - Pneumonia [Recovered/Resolved]
  - Prescribed overdose [Recovered/Resolved]
